FAERS Safety Report 9330051 (Version 2)
Quarter: 2013Q3

REPORT INFORMATION
  Report Type: Spontaneous
  Country: JP (occurrence: JP)
  Receive Date: 20130604
  Receipt Date: 20130708
  Transmission Date: 20140515
  Serious: Yes (Hospitalization, Other)
  Sender: FDA-Public Use
  Company Number: JP-PFIZER INC-2013164769

PATIENT
  Age: 4 Decade
  Sex: Male

DRUGS (1)
  1. PREMARIN [Suspect]
     Route: 048

REACTIONS (3)
  - Schizophrenia [Unknown]
  - Hallucination [Unknown]
  - Paranoia [Unknown]
